FAERS Safety Report 8631758 (Version 2)
Quarter: 2013Q3

REPORT INFORMATION
  Report Type: Spontaneous
  Country: US (occurrence: US)
  Receive Date: 20120625
  Receipt Date: 20130911
  Transmission Date: 20140515
  Serious: No
  Sender: FDA-Public Use
  Company Number: US-PFIZER INC-2012147290

PATIENT
  Age: 60 Year
  Sex: Female

DRUGS (2)
  1. IBUPROFEN [Suspect]
     Dosage: UNK
  2. VIOXX [Suspect]
     Dosage: UNK

REACTIONS (3)
  - Epigastric discomfort [Unknown]
  - Anaemia [Unknown]
  - Drug hypersensitivity [Unknown]
